FAERS Safety Report 21239427 (Version 1)
Quarter: 2022Q3

REPORT INFORMATION
  Report Type: Spontaneous
  Country: DE (occurrence: DE)
  Receive Date: 20220822
  Receipt Date: 20220822
  Transmission Date: 20221027
  Serious: Yes (Other)
  Sender: FDA-Public Use
  Company Number: DE-RECORDATI RARE DISEASE INC.-2022003836

PATIENT

DRUGS (7)
  1. ACTINOMYCIN D [Suspect]
     Active Substance: DACTINOMYCIN
     Indication: Fibrosarcoma
     Dosage: TWO CYCLES OF VAC THERAPY
  2. ACTINOMYCIN D [Suspect]
     Active Substance: DACTINOMYCIN
     Dosage: 3 CYCLES OF VAC THERAPY
  3. VINCRISTINE [Suspect]
     Active Substance: VINCRISTINE
     Indication: Fibrosarcoma
     Dosage: TWO CYCLES OF VAC THERAPY
  4. VINCRISTINE [Suspect]
     Active Substance: VINCRISTINE
     Dosage: 3 CYCLES OF VAC THERAPY
  5. CYCLOPHOSPHAMIDE [Suspect]
     Active Substance: CYCLOPHOSPHAMIDE
     Indication: Fibrosarcoma
     Dosage: TWO CYCLES OF VAC THERAPY
  6. CYCLOPHOSPHAMIDE [Suspect]
     Active Substance: CYCLOPHOSPHAMIDE
     Dosage: 3 CYCLES OF VAC THERAPY
  7. LAROTRECTINIB [Suspect]
     Active Substance: LAROTRECTINIB
     Indication: Fibrosarcoma

REACTIONS (1)
  - Disease progression [Recovered/Resolved]
